FAERS Safety Report 4399146-6 (Version None)
Quarter: 2004Q2

REPORT INFORMATION
  Report Type: 
  Country: None (occurrence: None)
  Receive Date: 20040621
  Receipt Date: 20040316
  Transmission Date: 20050107
  Serious: Yes (Other)
  Sender: FDA-Public Use
  Company Number: USA-2004-0014000

PATIENT
  Sex: Male

DRUGS (3)
  1. OXYCONTIN [Suspect]
     Indication: PAIN
     Dosage: 10 MG, Q12H, ORAL
     Route: 048
  2. VERAPAMIL [Concomitant]
  3. CELEBREX [Concomitant]

REACTIONS (5)
  - APATHY [None]
  - DRUG ABUSER [None]
  - DRUG TOLERANCE INCREASED [None]
  - EUPHORIC MOOD [None]
  - SEDATION [None]
